FAERS Safety Report 5002263-0 (Version None)
Quarter: 2006Q2

REPORT INFORMATION
  Report Type: 
  Country: None (occurrence: None)
  Receive Date: 20060502
  Receipt Date: 20060420
  Transmission Date: 20061013
  Serious: Yes (Hospitalization, Other)
  Sender: FDA-Public Use
  Company Number: THYM-10913

PATIENT
  Age: 31 Year
  Sex: Male
  Weight: 106 kg

DRUGS (15)
  1. THYMOGLOBULIN [Suspect]
     Indication: HEART TRANSPLANT REJECTION
     Dosage: 160 MG QD IV
     Route: 042
     Dates: start: 20030711, end: 20030711
  2. THYMOGLOBULIN [Suspect]
     Indication: HEART TRANSPLANT REJECTION
     Dosage: 106 MG QD IV
     Route: 042
     Dates: start: 20030713, end: 20030716
  3. CEFEPIME [Concomitant]
  4. PROGRAF [Concomitant]
  5. CELLCEPT [Concomitant]
  6. PREDNISONE TAB [Concomitant]
  7. VALCYTE [Concomitant]
  8. BACTRIM DS [Concomitant]
  9. NYSTATIN [Concomitant]
  10. ZANTAC [Concomitant]
  11. CARDIZEM CD [Concomitant]
  12. CLONIDINE [Concomitant]
  13. INSULIN NPH/REGULAR 70/30 [Concomitant]
  14. OXYIR [Concomitant]
  15. HEPARIN [Concomitant]

REACTIONS (1)
  - SERUM SICKNESS [None]
